FAERS Safety Report 6510298-1 (Version None)
Quarter: 2009Q4

REPORT INFORMATION
  Report Type: 
  Country: None (occurrence: None)
  Receive Date: 20091222
  Receipt Date: 20091006
  Transmission Date: 20100525
  Serious: No
  Sender: FDA-Public Use
  Company Number: US-ASTRAZENECA-2009SE18516

PATIENT
  Sex: Female

DRUGS (15)
  1. CRESTOR [Suspect]
     Indication: BLOOD CHOLESTEROL INCREASED
     Route: 048
  2. METOPROLOL TARTRATE [Concomitant]
  3. SIMVASTATIN [Concomitant]
  4. AMLODIPINE [Concomitant]
  5. LEVOTHYROXINE SODIUM [Concomitant]
  6. MORPHINE SULFATE [Concomitant]
  7. MIRAPEX [Concomitant]
  8. DIAZEPAM [Concomitant]
  9. LYRICA [Concomitant]
  10. OXYCODONE [Concomitant]
  11. ALLOPURINOL [Concomitant]
  12. MELOXICAM [Concomitant]
  13. GABAPENTIN [Concomitant]
  14. PAROXETINE HCL [Concomitant]
  15. KLOR-COM [Concomitant]

REACTIONS (5)
  - BALANCE DISORDER [None]
  - DYSARTHRIA [None]
  - EYE SWELLING [None]
  - OEDEMA PERIPHERAL [None]
  - SOMNOLENCE [None]
